FAERS Safety Report 11700946 (Version 2)
Quarter: 2016Q1

REPORT INFORMATION
  Report Type: Spontaneous
  Country: US (occurrence: US)
  Receive Date: 20151105
  Receipt Date: 20160212
  Transmission Date: 20160525
  Serious: Yes (Hospitalization)
  Sender: FDA-Public Use
  Company Number: US-JNJFOC-20151104045

PATIENT
  Sex: Female
  Weight: 51 kg

DRUGS (9)
  1. ASPIRINE [Suspect]
     Active Substance: ASPIRIN
     Indication: CARDIOVASCULAR EVENT PROPHYLAXIS
     Route: 065
  2. ALIGN [Concomitant]
     Active Substance: BIFIDOBACTERIUM LONGUM SUBSP. INFANTIS
  3. ASPIRINE [Suspect]
     Active Substance: ASPIRIN
     Indication: CARDIOVASCULAR EVENT PROPHYLAXIS
     Route: 065
  4. VITAMIN D [Concomitant]
     Active Substance: CHOLECALCIFEROL
     Dosage: 1000 UNITS, QD
  5. IMBRUVICA [Suspect]
     Active Substance: IBRUTINIB
     Indication: WALDENSTROM^S MACROGLOBULINAEMIA
     Route: 048
     Dates: start: 20150811, end: 20150819
  6. ASPIRINE [Suspect]
     Active Substance: ASPIRIN
     Indication: AORTIC VALVE INCOMPETENCE
     Route: 065
  7. CALCIUM CITRATE [Concomitant]
     Active Substance: CALCIUM CITRATE
     Dosage: 2.2 X DAY
     Route: 048
  8. ASPIRINE [Suspect]
     Active Substance: ASPIRIN
     Indication: AORTIC VALVE INCOMPETENCE
     Route: 065
  9. PROLIA [Concomitant]
     Active Substance: DENOSUMAB

REACTIONS (2)
  - Gastric disorder [Recovered/Resolved]
  - Upper gastrointestinal haemorrhage [Recovered/Resolved]

NARRATIVE: CASE EVENT DATE: 2015
